FAERS Safety Report 21188198 (Version 1)
Quarter: 2022Q3

REPORT INFORMATION
  Report Type: Spontaneous
  Country: US (occurrence: US)
  Receive Date: 20220809
  Receipt Date: 20220809
  Transmission Date: 20221027
  Serious: No
  Sender: FDA-Public Use
  Company Number: US-LUPIN PHARMACEUTICALS INC.-2020-09980

PATIENT
  Age: 65 Year
  Sex: Female

DRUGS (13)
  1. LURASIDONE [Suspect]
     Active Substance: LURASIDONE
     Indication: Bipolar disorder
     Dosage: 40 MG, QD
     Route: 065
  2. TEMAZEPAM [Suspect]
     Active Substance: TEMAZEPAM
     Indication: Bipolar disorder
     Dosage: 30 MG, QD
     Route: 065
  3. ESCITALOPRAM [Suspect]
     Active Substance: ESCITALOPRAM OXALATE
     Indication: Depression
     Dosage: 10 MG, QD
     Route: 065
     Dates: start: 201904
  4. ESCITALOPRAM [Suspect]
     Active Substance: ESCITALOPRAM OXALATE
     Indication: Anxiety
  5. LITHIUM [Suspect]
     Active Substance: LITHIUM
     Indication: Bipolar disorder
     Dosage: UNK
     Route: 065
  6. PERPHENAZINE [Suspect]
     Active Substance: PERPHENAZINE
     Indication: Bipolar disorder
     Dosage: 16 MG, QD
     Route: 065
  7. PERPHENAZINE [Suspect]
     Active Substance: PERPHENAZINE
     Dosage: 4 MG, QD
     Route: 065
  8. PERPHENAZINE [Suspect]
     Active Substance: PERPHENAZINE
     Dosage: 4 MG, BID
     Route: 065
  9. MELATONIN [Suspect]
     Active Substance: MELATONIN
     Indication: Insomnia
     Dosage: UNK, PRN UNK UNK, ADMINISTERED 5 TO 10 MG AS REQUIRED.
     Route: 065
  10. MELATONIN [Suspect]
     Active Substance: MELATONIN
     Dosage: 5 MG, QD  AT BEDTIME
     Route: 065
  11. DIVALPROEX SODIUM [Concomitant]
     Active Substance: DIVALPROEX SODIUM
     Indication: Bipolar disorder
     Dosage: 1500 MG, QD
     Route: 065
  12. DIVALPROEX SODIUM [Concomitant]
     Active Substance: DIVALPROEX SODIUM
     Dosage: 750 MG, QD
     Route: 065
  13. DIVALPROEX SODIUM [Concomitant]
     Active Substance: DIVALPROEX SODIUM
     Dosage: 500 MG, QD
     Route: 065

REACTIONS (2)
  - Hyponatraemia [Recovered/Resolved]
  - Off label use [Unknown]

NARRATIVE: CASE EVENT DATE: 20190401
